FAERS Safety Report 8468853 (Version 3)
Quarter: 2013Q2

REPORT INFORMATION
  Report Type: Spontaneous
  Country: US (occurrence: US)
  Receive Date: 20120321
  Receipt Date: 20130610
  Transmission Date: 20140414
  Serious: No
  Sender: FDA-Public Use
  Company Number: US-BIOGENIDEC-2012BI009511

PATIENT
  Age: 49 Year
  Sex: Male

DRUGS (3)
  1. TYSABRI [Suspect]
     Indication: MULTIPLE SCLEROSIS
     Route: 042
     Dates: start: 20120217
  2. BLOOD PRESSURE MEDICATION [Concomitant]
     Indication: HYPERTENSION
  3. BLOOD PRESSURE MEDICATION [Concomitant]
     Indication: HYPERTENSION

REACTIONS (7)
  - Balance disorder [Recovered/Resolved with Sequelae]
  - Fall [Recovered/Resolved]
  - Contusion [Recovered/Resolved]
  - Somnolence [Recovered/Resolved]
  - Rash macular [Not Recovered/Not Resolved]
  - Hypotension [Recovered/Resolved with Sequelae]
  - Multiple sclerosis relapse [Recovered/Resolved]
